FAERS Safety Report 5937428-4 (Version None)
Quarter: 2008Q4

REPORT INFORMATION
  Report Type: 
  Country: None (occurrence: None)
  Receive Date: 20081031
  Receipt Date: 20081028
  Transmission Date: 20090506
  Serious: Yes (Other)
  Sender: FDA-Public Use
  Company Number: A0730032A

PATIENT
  Sex: Female

DRUGS (2)
  1. PAROXETINE HCL [Suspect]
     Indication: DRUG USE FOR UNKNOWN INDICATION
     Route: 048
  2. UNKNOWN [Concomitant]

REACTIONS (7)
  - ADVERSE EVENT [None]
  - BRAIN INJURY [None]
  - DRUG WITHDRAWAL SYNDROME [None]
  - ELECTROLYTE DEPLETION [None]
  - HYPOKALAEMIA [None]
  - MUSCLE ATROPHY [None]
  - WEIGHT INCREASED [None]
